FAERS Safety Report 8967693 (Version 1)
Quarter: 2012Q4

REPORT INFORMATION
  Report Type: Spontaneous
  Country: FR (occurrence: None)
  Receive Date: 20121210
  Receipt Date: 20121210
  Transmission Date: 20130627
  Serious: Yes (Other)
  Sender: FDA-Public Use
  Company Number: THQ2012A10892

PATIENT
  Age: 75 Year
  Sex: Female

DRUGS (2)
  1. LANSOPRAZOLE (LANSOPRAZOLE) [Suspect]
     Indication: DRUG USE FOR UNKNOWN INDICATION
  2. AMOXICILLIN [Suspect]

REACTIONS (1)
  - Drug reaction with eosinophilia and systemic symptoms [None]
